FAERS Safety Report 9473760 (Version 1)
Quarter: 2013Q3

REPORT INFORMATION
  Report Type: Spontaneous
  Country: US (occurrence: US)
  Receive Date: 20130823
  Receipt Date: 20130823
  Transmission Date: 20140515
  Serious: No
  Sender: FDA-Public Use
  Company Number: US-BRISTOL-MYERS SQUIBB COMPANY-16961666

PATIENT
  Age: 51 Year
  Sex: Female

DRUGS (4)
  1. SPRYCEL [Suspect]
     Dosage: TABLETS
     Route: 048
     Dates: start: 20120910
  2. VALTREX [Concomitant]
     Dosage: TABS
  3. PROBIOTICA [Concomitant]
     Dosage: CAPS
  4. SYNTHROID [Concomitant]
     Dosage: TABS

REACTIONS (1)
  - Headache [Not Recovered/Not Resolved]
